FAERS Safety Report 4998317-5 (Version None)
Quarter: 2006Q2

REPORT INFORMATION
  Report Type: 
  Country: None (occurrence: None)
  Receive Date: 20060508
  Receipt Date: 20060424
  Transmission Date: 20061013
  Serious: Yes (Life-Threatening, Hospitalization, Other)
  Sender: FDA-Public Use
  Company Number: 2006US-02139

PATIENT
  Sex: Female

DRUGS (3)
  1. LORAZEPAM [Suspect]
     Dosage: 0.5 MG
  2. FLUOXETINE FAMILY              (FLUOXETINE) [Suspect]
     Dosage: 10 MG
  3. AMITRIPTYLINE HCL [Concomitant]

REACTIONS (15)
  - AREFLEXIA [None]
  - BLOOD PH INCREASED [None]
  - ELECTROCARDIOGRAM QRS COMPLEX ABNORMAL [None]
  - HEPATIC FAILURE [None]
  - HYPOTENSION [None]
  - INTENTIONAL OVERDOSE [None]
  - ISCHAEMIC HEPATITIS [None]
  - LOSS OF CONSCIOUSNESS [None]
  - OPIATES POSITIVE [None]
  - PO2 INCREASED [None]
  - RHABDOMYOLYSIS [None]
  - SINUS BRADYCARDIA [None]
  - TOXICOLOGIC TEST ABNORMAL [None]
  - UNRESPONSIVE TO PAIN STIMULI [None]
  - UNRESPONSIVE TO VERBAL STIMULI [None]
